FAERS Safety Report 5030099-3 (Version None)
Quarter: 2006Q2

REPORT INFORMATION
  Report Type: 
  Country: None (occurrence: None)
  Receive Date: 20060620
  Receipt Date: 20060410
  Transmission Date: 20061013
  Serious: Yes (Other)
  Sender: FDA-Public Use
  Company Number: US-SANOFI-SYNTHELABO-A03200602231

PATIENT
  Sex: Female
  Weight: 86.2 kg

DRUGS (1)
  1. AMBIEN [Suspect]
     Indication: INSOMNIA
     Route: 048
     Dates: start: 20040501, end: 20060202

REACTIONS (8)
  - AMNESIA [None]
  - CONCUSSION [None]
  - FALL [None]
  - HEAD INJURY [None]
  - JOINT SPRAIN [None]
  - OVERDOSE [None]
  - ROAD TRAFFIC ACCIDENT [None]
  - SLEEP WALKING [None]
